FAERS Safety Report 11385711 (Version 1)
Quarter: 2015Q3

REPORT INFORMATION
  Report Type: Report from Study
  Country: US (occurrence: US)
  Receive Date: 20150817
  Receipt Date: 20150817
  Transmission Date: 20151125
  Serious: No
  Sender: FDA-Public Use
  Company Number: PHEH2015US008166

PATIENT
  Sex: Female
  Weight: 63.49 kg

DRUGS (1)
  1. GILENYA [Suspect]
     Active Substance: FINGOLIMOD HYDROCHLORIDE
     Indication: MULTIPLE SCLEROSIS
     Dosage: 0.5 MG, QD
     Route: 048
     Dates: start: 20141203

REACTIONS (11)
  - Pain in extremity [Not Recovered/Not Resolved]
  - Increased appetite [Unknown]
  - Stress [Unknown]
  - Weight increased [Unknown]
  - Disturbance in attention [Not Recovered/Not Resolved]
  - Cognitive disorder [Not Recovered/Not Resolved]
  - Chest pain [Recovered/Resolved]
  - Visual field defect [Unknown]
  - Memory impairment [Unknown]
  - Chest discomfort [Recovered/Resolved]
  - Swelling [Not Recovered/Not Resolved]
